FAERS Safety Report 8687993 (Version 3)
Quarter: 2014Q2

REPORT INFORMATION
  Report Type: Spontaneous
  Country: US (occurrence: US)
  Receive Date: 20120727
  Receipt Date: 20140613
  Transmission Date: 20141212
  Serious: Yes (Hospitalization, Other)
  Sender: FDA-Public Use
  Company Number: US-009507513-1206USA01760

PATIENT
  Age: 18 Year
  Sex: Female

DRUGS (6)
  1. ISENTRESS [Suspect]
     Dosage: TOTAL DAILY DOSE: 800 MG / DAY
     Route: 048
     Dates: start: 20111115, end: 20120516
  2. PREZISTA [Suspect]
     Indication: HIV INFECTION
     Dosage: 1200 MG / DAY
     Route: 042
     Dates: start: 20111115, end: 20120516
  3. NORVIR [Suspect]
     Indication: HIV INFECTION
     Dosage: 2000 MG / DAY
     Route: 048
     Dates: start: 20111115, end: 20120516
  4. INTELENCE [Suspect]
     Indication: HIV INFECTION
     Dosage: 400 MG, QD
     Route: 048
     Dates: start: 20111115, end: 20120516
  5. EPZICOM [Suspect]
     Indication: HIV INFECTION
     Dosage: 1 TAB/CAPS, QD
     Route: 048
     Dates: start: 20111115, end: 20120516
  6. RETROVIR [Suspect]
     Indication: HIV INFECTION
     Dosage: 2000 MG, QD
     Route: 042
     Dates: start: 20110515, end: 20120516

REACTIONS (3)
  - Amniotic fluid volume decreased [Unknown]
  - Premature labour [Unknown]
  - Exposure during pregnancy [Recovered/Resolved]
